FAERS Safety Report 5453893-3 (Version None)
Quarter: 2007Q3

REPORT INFORMATION
  Report Type: 
  Country: None (occurrence: None)
  Receive Date: 20070917
  Receipt Date: 20070905
  Transmission Date: 20080115
  Serious: Yes (Other)
  Sender: FDA-Public Use
  Company Number: B0487250A

PATIENT
  Age: 43 Year
  Sex: Male

DRUGS (3)
  1. ALBUTEROL [Suspect]
     Indication: ASTHMA
     Route: 055
  2. TRIAMCINOLONE ACETONIDE [Suspect]
     Route: 045
  3. ALPRAZOLAM [Concomitant]
     Route: 065

REACTIONS (12)
  - ASTHMA [None]
  - CHEST DISCOMFORT [None]
  - CHOKING SENSATION [None]
  - COUGH [None]
  - DYSPNOEA [None]
  - FOREIGN BODY ASPIRATION [None]
  - OBSTRUCTIVE AIRWAYS DISORDER [None]
  - PHARYNGEAL OEDEMA [None]
  - PNEUMOMEDIASTINUM [None]
  - PNEUMOTHORAX [None]
  - THROAT IRRITATION [None]
  - WHEEZING [None]
